FAERS Safety Report 13157479 (Version 1)
Quarter: 2017Q1

REPORT INFORMATION
  Report Type: Spontaneous
  Country: US (occurrence: US)
  Receive Date: 20170125
  Receipt Date: 20170125
  Transmission Date: 20170428
  Serious: Yes (Hospitalization)
  Sender: FDA-Public Use
  Company Number: None

PATIENT
  Age: 65 Year
  Sex: Male

DRUGS (8)
  1. LENALIDOMIDE [Concomitant]
     Active Substance: LENALIDOMIDE
  2. ASPIRIN. [Concomitant]
     Active Substance: ASPIRIN
  3. FAMOTIDINE. [Concomitant]
     Active Substance: FAMOTIDINE
  4. ACYCLOVIR. [Concomitant]
     Active Substance: ACYCLOVIR
  5. REVLIMID [Suspect]
     Active Substance: LENALIDOMIDE
     Indication: PLASMA CELL MYELOMA
     Dosage: 25MG DAILY X 14D/21D ORAL
     Route: 048
     Dates: start: 20160824
  6. ATORVASTATIN [Concomitant]
     Active Substance: ATORVASTATIN
  7. DEXAMETHASONE. [Concomitant]
     Active Substance: DEXAMETHASONE
  8. LISINOPRIL. [Concomitant]
     Active Substance: LISINOPRIL

REACTIONS (6)
  - Respiratory tract infection viral [None]
  - Dysuria [None]
  - Pulmonary embolism [None]
  - Sepsis [None]
  - Hypoxia [None]
  - Pneumonia bacterial [None]

NARRATIVE: CASE EVENT DATE: 20161221
